FAERS Safety Report 4418062-4 (Version None)
Quarter: 2004Q3

REPORT INFORMATION
  Report Type: 
  Country: None (occurrence: None)
  Receive Date: 20040803
  Receipt Date: 20040720
  Transmission Date: 20050211
  Serious: Yes (Hospitalization)
  Sender: FDA-Public Use
  Company Number: 238225

PATIENT
  Sex: 0

DRUGS (5)
  1. NOVORAPID PENFIL? 3 ML (NOVORAPID PENFILL?3 ML) (INSULIN ASPART) SOLUT [Suspect]
     Indication: DIABETES MELLITUS INSULIN-DEPENDENT
     Dosage: 76 IU, QD, INTRAUTERINE
     Route: 015
     Dates: start: 20040108
  2. INSULATARD PENFILL (INSULIN HUMAN) [Concomitant]
  3. LEVOTHYROXINE SODIUM [Concomitant]
  4. METHYLDOPA [Concomitant]
  5. ADALAT OROS (NIFEDIPINE) [Concomitant]

REACTIONS (2)
  - DRUG EXPOSURE DURING PREGNANCY [None]
  - HYPOGLYCAEMIA NEONATAL [None]
